FAERS Safety Report 5499651-5 (Version None)
Quarter: 2007Q4

REPORT INFORMATION
  Report Type: 
  Country: None (occurrence: None)
  Receive Date: 20071026
  Receipt Date: 20071017
  Transmission Date: 20080405
  Serious: Yes (Hospitalization, Other)
  Sender: FDA-Public Use
  Company Number: US-PFIZER INC-2006142976

PATIENT
  Sex: Female
  Weight: 53.5 kg

DRUGS (8)
  1. CELEBREX [Suspect]
     Indication: BACK PAIN
     Route: 048
  2. CELEBREX [Suspect]
     Indication: NECK PAIN
  3. LIPITOR [Concomitant]
     Route: 048
  4. SKELAXIN [Concomitant]
     Route: 048
  5. ASPIRIN [Concomitant]
     Route: 048
  6. PREVACID [Concomitant]
     Route: 048
  7. PREMARIN [Concomitant]
     Route: 048
  8. LASIX [Concomitant]
     Route: 048

REACTIONS (1)
  - PULMONARY EMBOLISM [None]
